FAERS Safety Report 16472280 (Version 2)
Quarter: 2019Q4

REPORT INFORMATION
  Report Type: Report from Study
  Country: None (occurrence: DE)
  Receive Date: 20190625
  Receipt Date: 20191204
  Transmission Date: 20200122
  Serious: Yes (Hospitalization, Other)
  Sender: FDA-Public Use
  Company Number: DE-ABBVIE-19K-062-2829231-00

PATIENT
  Age: 70 Year
  Sex: Female
  Weight: 81 kg

DRUGS (4)
  1. HYRIMOZ [Suspect]
     Active Substance: ADALIMUMAB-ADAZ
     Indication: PSORIASIS
     Route: 058
     Dates: start: 20190402, end: 20190521
  2. HYRIMOZ [Suspect]
     Active Substance: ADALIMUMAB-ADAZ
     Indication: PSORIATIC ARTHROPATHY
  3. PANTOZOL [Concomitant]
     Active Substance: PANTOPRAZOLE SODIUM
     Indication: PRODUCT USED FOR UNKNOWN INDICATION
  4. HUMIRA [Suspect]
     Active Substance: ADALIMUMAB
     Indication: PSORIASIS
     Route: 058
     Dates: start: 20170531, end: 20190319

REACTIONS (15)
  - Microangiopathy [Recovered/Resolved]
  - Fatigue [Recovered/Resolved]
  - Hypersensitivity [Unknown]
  - Body fat disorder [Unknown]
  - Dyspnoea [Recovered/Resolved]
  - Abdominal pain [Recovered/Resolved]
  - Aortic valve incompetence [Recovered/Resolved]
  - Left ventricular hypertrophy [Recovered/Resolved]
  - White matter lesion [Recovered/Resolved]
  - Mental disorder [Recovered/Resolved]
  - Aphasia [Recovered/Resolved]
  - Hyperhidrosis [Recovered/Resolved]
  - Drug intolerance [Unknown]
  - Transient ischaemic attack [Recovered/Resolved]
  - Mitral valve incompetence [Recovered/Resolved]

NARRATIVE: CASE EVENT DATE: 20190420
